FAERS Safety Report 7417724-4 (Version None)
Quarter: 2011Q2

REPORT INFORMATION
  Report Type: 
  Country: None (occurrence: None)
  Receive Date: 20110415
  Receipt Date: 20110412
  Transmission Date: 20111010
  Serious: Yes (Death, Other)
  Sender: FDA-Public Use
  Company Number: PHHY2011DE30818

PATIENT
  Sex: Female
  Weight: 55 kg

DRUGS (3)
  1. FASLODEX [Concomitant]
     Dosage: UNK
     Dates: start: 20100517
  2. ZOMETA [Suspect]
     Indication: BONE DISORDER
     Dosage: 4 MG EVERY 4 WEEKS
     Route: 042
     Dates: start: 20090915, end: 20110210
  3. LETROZOLE [Concomitant]
     Dosage: UNK
     Dates: start: 20090909

REACTIONS (5)
  - NEOPLASM MALIGNANT [None]
  - DEATH [None]
  - CHOLELITHIASIS [None]
  - RENAL CYST [None]
  - METASTASES TO LIVER [None]
